FAERS Safety Report 10758887 (Version 2)
Quarter: 2015Q1

REPORT INFORMATION
  Report Type: Spontaneous
  Country: US (occurrence: US)
  Receive Date: 20150203
  Receipt Date: 20150226
  Transmission Date: 20150721
  Serious: No
  Sender: FDA-Public Use
  Company Number: US-PFIZER INC-2015039937

PATIENT
  Age: 59 Year
  Sex: Male

DRUGS (3)
  1. SERTRALINE [Concomitant]
     Active Substance: SERTRALINE HYDROCHLORIDE
     Dosage: 50 MG, DAILY (AT NIGHT)
     Dates: start: 20140401
  2. CHANTIX [Suspect]
     Active Substance: VARENICLINE TARTRATE
     Dosage: 1 MG, DAILY (IN THE MORNINGS)
     Dates: start: 20150109
  3. CHANTIX [Suspect]
     Active Substance: VARENICLINE TARTRATE
     Indication: SMOKING CESSATION THERAPY
     Dosage: 2 MG, DAILY

REACTIONS (3)
  - Abnormal dreams [Not Recovered/Not Resolved]
  - Nightmare [Recovered/Resolved]
  - Cardiac disorder [Recovered/Resolved]
